FAERS Safety Report 21154963 (Version 2)
Quarter: 2022Q3

REPORT INFORMATION
  Report Type: Report from Study
  Country: US (occurrence: US)
  Receive Date: 20220801
  Receipt Date: 20220920
  Transmission Date: 20221026
  Serious: Yes (Other)
  Sender: FDA-Public Use
  Company Number: US-BRISTOL-MYERS SQUIBB COMPANY-2022-078990

PATIENT
  Age: 56 Year
  Sex: Female
  Weight: 99.79 kg

DRUGS (9)
  1. REVLIMID [Suspect]
     Active Substance: LENALIDOMIDE
     Indication: Plasma cell myeloma
     Dosage: ONCE DAILY FOR 3 WEEKS AND 1 WEEK OFF
     Route: 048
     Dates: start: 20220601
  2. REVLIMID [Suspect]
     Active Substance: LENALIDOMIDE
     Indication: Anaemia
  3. REVLIMID [Suspect]
     Active Substance: LENALIDOMIDE
     Indication: Back pain
  4. DARZALEX [Concomitant]
     Active Substance: DARATUMUMAB
     Indication: Product used for unknown indication
     Route: 065
  5. FUROSEMIDE [Concomitant]
     Active Substance: FUROSEMIDE
     Indication: Product used for unknown indication
     Route: 065
  6. MONTELUKAST [Concomitant]
     Active Substance: MONTELUKAST SODIUM
     Indication: Product used for unknown indication
     Route: 065
  7. PREDNISONE [Concomitant]
     Active Substance: PREDNISONE
     Indication: Product used for unknown indication
     Route: 065
  8. ACYCLOVIR [Concomitant]
     Active Substance: ACYCLOVIR
     Indication: Product used for unknown indication
     Route: 065
  9. ONDANSETRON [Concomitant]
     Active Substance: ONDANSETRON
     Indication: Product used for unknown indication
     Route: 065

REACTIONS (8)
  - Swelling of eyelid [Unknown]
  - Urticaria [Recovered/Resolved]
  - Swelling [Recovered/Resolved]
  - Fluid retention [Recovered/Resolved]
  - Fatigue [Unknown]
  - Constipation [Unknown]
  - Peripheral swelling [Unknown]
  - Ageusia [Unknown]

NARRATIVE: CASE EVENT DATE: 20220601
